FAERS Safety Report 13347505 (Version 6)
Quarter: 2018Q1

REPORT INFORMATION
  Report Type: Spontaneous
  Country: JP (occurrence: JP)
  Receive Date: 20170317
  Receipt Date: 20180323
  Transmission Date: 20180508
  Serious: Yes (Death, Hospitalization, Other)
  Sender: FDA-Public Use
  Company Number: JP-PFIZER INC-2017113482

PATIENT
  Age: 68 Year
  Sex: Female
  Weight: 40 kg

DRUGS (5)
  1. VOTRIENT [Concomitant]
     Active Substance: PAZOPANIB HYDROCHLORIDE
     Dosage: UNK
     Dates: start: 20170804, end: 20170831
  2. INLYTA [Suspect]
     Active Substance: AXITINIB
     Dosage: 8 MG, DAILY
     Route: 048
     Dates: start: 20170901, end: 20170907
  3. INLYTA [Suspect]
     Active Substance: AXITINIB
     Indication: METASTASES TO LUNG
     Dosage: 8 MG, DAILY
     Route: 048
     Dates: start: 20170425, end: 20170803
  4. ZOMETA [Concomitant]
     Active Substance: ZOLEDRONIC ACID
     Dosage: UNK
  5. INLYTA [Suspect]
     Active Substance: AXITINIB
     Indication: RENAL CELL CARCINOMA
     Dosage: 8 MG, DAILY
     Route: 048
     Dates: start: 20160216, end: 20170319

REACTIONS (6)
  - Palmar-plantar erythrodysaesthesia syndrome [Unknown]
  - Fall [Unknown]
  - Cerebral haemorrhage [Unknown]
  - Fracture [Unknown]
  - Cholecystitis [Recovered/Resolved]
  - Neoplasm progression [Unknown]

NARRATIVE: CASE EVENT DATE: 201703
